FAERS Safety Report 9160703 (Version 1)
Quarter: 2013Q1

REPORT INFORMATION
  Report Type: Spontaneous
  Country: US (occurrence: None)
  Receive Date: 20130215
  Receipt Date: 20130215
  Transmission Date: 20140127
  Serious: Yes (Other)
  Sender: FDA-Public Use
  Company Number: 2013P1002042

PATIENT
  Age: 11 Year
  Sex: Female

DRUGS (2)
  1. ETHOSUXIMIDE [Suspect]
     Indication: EPILEPSY
  2. ETHOSUXIMIDE [Suspect]
     Indication: PETIT MAL EPILEPSY

REACTIONS (1)
  - Benign rolandic epilepsy [None]
